FAERS Safety Report 13874133 (Version 1)
Quarter: 2017Q3

REPORT INFORMATION
  Report Type: Spontaneous
  Country: NL (occurrence: NL)
  Receive Date: 20170816
  Receipt Date: 20170816
  Transmission Date: 20171127
  Serious: Yes (Hospitalization, Other)
  Sender: FDA-Public Use
  Company Number: NL-PFIZER INC-2017347842

PATIENT
  Age: 76 Year
  Sex: Male

DRUGS (12)
  1. FLUTIFORM [Concomitant]
     Active Substance: FLUTICASONE PROPIONATE\FORMOTEROL FUMARATE
     Dosage: 2 DF, 2X/DAY
     Route: 055
     Dates: start: 20161212
  2. CRESTOR [Concomitant]
     Active Substance: ROSUVASTATIN CALCIUM
     Dosage: 10 MG, 1X/DAY
     Route: 048
     Dates: start: 20071010
  3. SPIRIVA [Concomitant]
     Active Substance: TIOTROPIUM BROMIDE MONOHYDRATE
     Dosage: 2 DF, 1X/DAY
     Dates: start: 201610, end: 20170504
  4. PANTOPRAZOL [Concomitant]
     Active Substance: PANTOPRAZOLE SODIUM
     Dosage: 40 MG, 1X/DAY
     Route: 048
     Dates: start: 20080201
  5. AMOXICILLINE/CLAVULAANZUUR [Concomitant]
     Active Substance: AMOXICILLIN\CLAVULANATE POTASSIUM
     Dosage: 1 DF, IRREGULAR USE
     Route: 048
     Dates: start: 20080115
  6. PREDNISOLON ^DLF^ [Concomitant]
     Active Substance: PREDNISOLONE
     Dosage: 1 G, IRREGULAR SCHEME
     Route: 048
     Dates: start: 20121227
  7. AZITHROMYCIN ANHYDROUS. [Suspect]
     Active Substance: AZITHROMYCIN ANHYDROUS
     Indication: PROPHYLAXIS
     Dosage: 250 MG, ALTERNATE DAY
     Route: 048
     Dates: start: 20110615, end: 20170522
  8. AZITHROMYCIN ANHYDROUS. [Suspect]
     Active Substance: AZITHROMYCIN ANHYDROUS
     Dosage: 250 MG, 1X/DAY
     Dates: start: 20170522, end: 20170727
  9. CLOPIDOGREL [Concomitant]
     Active Substance: CLOPIDOGREL BISULFATE
     Dosage: 75 MG, 1X/DAY
     Route: 048
     Dates: start: 20071010
  10. COLCHICINE. [Concomitant]
     Active Substance: COLCHICINE
     Dosage: START WITH 2 TABLETS, AFTER THAT 1 TABLET 2-3X/DAY UNTIL PAIN FREE
     Route: 048
     Dates: start: 20170601
  11. COMBIVENT [Concomitant]
     Active Substance: ALBUTEROL SULFATE\IPRATROPIUM BROMIDE
     Dosage: 1 DF, 2-4X/DAY
     Route: 055
     Dates: start: 20161227
  12. BUMETANIDE. [Concomitant]
     Active Substance: BUMETANIDE
     Dosage: 2 MG, 2X/DAY
     Dates: start: 20170529, end: 20170605

REACTIONS (1)
  - Haemoglobin decreased [Recovered/Resolved]

NARRATIVE: CASE EVENT DATE: 201707
